FAERS Safety Report 24741750 (Version 1)
Quarter: 2024Q4

REPORT INFORMATION
  Report Type: Report from Study
  Country: IN (occurrence: IN)
  Receive Date: 20241217
  Receipt Date: 20241217
  Transmission Date: 20250115
  Serious: Yes (Other)
  Sender: ROCHE
  Company Number: IN-ROCHE-10000145809

PATIENT
  Age: 66 Year
  Sex: Male
  Weight: 57 kg

DRUGS (1)
  1. POLIVY [Suspect]
     Active Substance: POLATUZUMAB VEDOTIN-PIIQ
     Indication: Diffuse large B-cell lymphoma
     Route: 042

REACTIONS (15)
  - Off label use [Unknown]
  - Rash [Unknown]
  - Skin exfoliation [Unknown]
  - Skin irritation [Unknown]
  - Neoplasm [Unknown]
  - Lymphoproliferative disorder [Unknown]
  - Non-Hodgkin^s lymphoma [Unknown]
  - Sinus disorder [Unknown]
  - Weight decreased [Unknown]
  - Bone marrow disorder [Unknown]
  - Neoplasm malignant [Unknown]
  - Haemoglobin decreased [Unknown]
  - Blood urea increased [Unknown]
  - Blood sodium decreased [Unknown]
  - Blood uric acid decreased [Unknown]

NARRATIVE: CASE EVENT DATE: 20241022
